APPROVED DRUG PRODUCT: PROCHLORPERAZINE MALEATE
Active Ingredient: PROCHLORPERAZINE MALEATE
Strength: EQ 5MG BASE
Dosage Form/Route: TABLET;ORAL
Application: A089484 | Product #001
Applicant: DURAMED PHARMACEUTICALS INC SUB BARR LABORATORIES INC
Approved: Jan 20, 1987 | RLD: No | RS: No | Type: DISCN